FAERS Safety Report 10594068 (Version 2)
Quarter: 2014Q4

REPORT INFORMATION
  Report Type: Spontaneous
  Country: JP (occurrence: JP)
  Receive Date: 20141119
  Receipt Date: 20141119
  Transmission Date: 20150529
  Serious: Yes (Other)
  Sender: FDA-Public Use
  Company Number: JP-GLAXOSMITHKLINE-JP2014JPN020676

PATIENT
  Sex: Male

DRUGS (5)
  1. TRYPTANOL [Concomitant]
     Active Substance: AMITRIPTYLINE
  2. BENZALIN [Concomitant]
     Active Substance: NITRAZEPAM
     Dosage: UNK
  3. LAMICTAL [Suspect]
     Active Substance: LAMOTRIGINE
     Indication: BIPOLAR DISORDER
     Dosage: UNK
     Route: 048
     Dates: start: 201406
  4. RIZE [Concomitant]
     Active Substance: CLOTIAZEPAM
     Dosage: UNK
  5. TEGRETOL [Concomitant]
     Active Substance: CARBAMAZEPINE

REACTIONS (1)
  - Electrocardiogram QT prolonged [Unknown]
